FAERS Safety Report 24929255 (Version 1)
Quarter: 2025Q1

REPORT INFORMATION
  Report Type: Spontaneous
  Country: US (occurrence: US)
  Receive Date: 20250205
  Receipt Date: 20250205
  Transmission Date: 20250409
  Serious: Yes (Hospitalization, Other)
  Sender: JOHNSON AND JOHNSON
  Company Number: US-JNJFOC-20250164745

PATIENT
  Age: 86 Year
  Sex: Male

DRUGS (1)
  1. RISPERDAL [Suspect]
     Active Substance: RISPERIDONE
     Indication: Major depression
     Route: 065

REACTIONS (6)
  - Parkinsonian gait [Unknown]
  - Delirium [Unknown]
  - Mania [Unknown]
  - Delusion [Unknown]
  - Psychotic disorder [Unknown]
  - Off label use [Unknown]
